FAERS Safety Report 7195631-2 (Version None)
Quarter: 2010Q4

REPORT INFORMATION
  Report Type: 
  Country: None (occurrence: None)
  Receive Date: 20101223
  Receipt Date: 20101213
  Transmission Date: 20110411
  Serious: Yes (Other)
  Sender: FDA-Public Use
  Company Number: US-MERCK-1012USA02205

PATIENT
  Age: 45 Year
  Sex: Female

DRUGS (4)
  1. SINGULAIR [Suspect]
     Indication: PNEUMONIA
     Route: 048
     Dates: start: 20100301, end: 20100701
  2. PAXIL [Concomitant]
     Route: 065
  3. CELEXA [Concomitant]
     Route: 065
  4. ADVAIR [Concomitant]
     Route: 065

REACTIONS (6)
  - AMNESIA [None]
  - CRYING [None]
  - INSOMNIA [None]
  - OFF LABEL USE [None]
  - SUICIDAL IDEATION [None]
  - TREMOR [None]
